FAERS Safety Report 4793999-5 (Version None)
Quarter: 2005Q4

REPORT INFORMATION
  Report Type: 
  Country: None (occurrence: None)
  Receive Date: 20051006
  Receipt Date: 20050921
  Transmission Date: 20060501
  Serious: Yes (Hospitalization)
  Sender: FDA-Public Use
  Company Number: 200504IM000135

PATIENT
  Age: 56 Year
  Sex: Male
  Weight: 88.4514 kg

DRUGS (3)
  1. INFERGEN [Suspect]
     Indication: HEPATITIS C
     Dosage: 15 UG; QD, SUBCUTANEOUS
     Route: 058
     Dates: start: 20050101
  2. RIBAVIRIN [Concomitant]
  3. WEELBUTRIN [Concomitant]

REACTIONS (21)
  - BENIGN PROSTATIC HYPERPLASIA [None]
  - CRYING [None]
  - DEPRESSION [None]
  - DRUG INEFFECTIVE [None]
  - DRY SKIN [None]
  - DYSURIA [None]
  - FEELING HOT [None]
  - HAEMATOCRIT DECREASED [None]
  - HAEMOGLOBIN DECREASED [None]
  - HEADACHE [None]
  - HYPOAESTHESIA [None]
  - INFLUENZA LIKE ILLNESS [None]
  - INJECTION SITE ERYTHEMA [None]
  - INJECTION SITE INFECTION [None]
  - INJECTION SITE REACTION [None]
  - PERIPHERAL COLDNESS [None]
  - RASH ERYTHEMATOUS [None]
  - RASH PRURITIC [None]
  - SCAR [None]
  - SUNBURN [None]
  - THYROID DISORDER [None]
